FAERS Safety Report 25912646 (Version 1)
Quarter: 2025Q4

REPORT INFORMATION
  Report Type: Spontaneous
  Country: SA (occurrence: SA)
  Receive Date: 20251013
  Receipt Date: 20251013
  Transmission Date: 20260118
  Serious: Yes (Death, Hospitalization, Other)
  Sender: AMGEN
  Company Number: SA-AMGEN-SAUSP2025201684

PATIENT

DRUGS (7)
  1. CINACALCET HYDROCHLORIDE [Suspect]
     Active Substance: CINACALCET HYDROCHLORIDE
     Indication: Hyperparathyroidism secondary
     Dosage: 30 MILLIGRAM, QD (TITRATED AS NEEDED)
     Route: 065
  2. ARANESP [Suspect]
     Active Substance: DARBEPOETIN ALFA
     Indication: Product used for unknown indication
     Dosage: 0.45 MICROGRAM/KILOGRAM, QWK
     Route: 058
  3. ARANESP [Suspect]
     Active Substance: DARBEPOETIN ALFA
     Dosage: 0.75 MICROGRAM/KILOGRAM, Q2WK
     Route: 058
  4. ALFACALCIDOL [Concomitant]
     Active Substance: ALFACALCIDOL
     Dosage: UNK UNK, QD, 0.05-0.1 MCG/KG/DAY, PO OR IV
  5. Seacal [Concomitant]
  6. RENVELA [Concomitant]
     Active Substance: SEVELAMER CARBONATE
     Dosage: 800 MILLIGRAM
  7. Ferosac [Concomitant]
     Dosage: 100 MILLIGRAM
     Route: 040

REACTIONS (12)
  - Cardiovascular disorder [Fatal]
  - Death [Fatal]
  - Angina unstable [Unknown]
  - Myocardial ischaemia [Unknown]
  - Myocardial infarction [Unknown]
  - Cardiac failure [Unknown]
  - Atrial fibrillation [Unknown]
  - Cerebrovascular accident [Unknown]
  - Atrial flutter [Unknown]
  - Peripheral vascular disorder [Unknown]
  - Fracture [Unknown]
  - Hypocalcaemia [Unknown]
